FAERS Safety Report 11272130 (Version 1)
Quarter: 2015Q2

REPORT INFORMATION
  Report Type: Spontaneous
  Country: US (occurrence: None)
  Receive Date: 20150625
  Receipt Date: 20150625
  Transmission Date: 20150821
  Serious: No
  Sender: FDA-Public Use
  Company Number: A-NJ2015-112021

PATIENT
  Age: 54 Year
  Sex: Female

DRUGS (12)
  1. OMEPRAZOLE. [Concomitant]
     Active Substance: OMEPRAZOLE
  2. ACYCLOVIR (ACICLOVIR) (ACICLOVIR) [Concomitant]
     Active Substance: ACYCLOVIR
  3. OPSUMIT [Suspect]
     Active Substance: MACITENTAN
     Indication: PULMONARY ARTERIAL HYPERTENSION
     Route: 048
     Dates: start: 20150103
  4. SILDENAFIL. [Concomitant]
     Active Substance: SILDENAFIL
  5. OXYCONTIN [Concomitant]
     Active Substance: OXYCODONE HYDROCHLORIDE
  6. VITAMIN B 6 (PYRIDOXINE HYDROCHLORIDE) [Concomitant]
  7. VITAMIN D (ERGOCALCIFEROL) [Concomitant]
     Active Substance: ERGOCALCIFEROL
  8. MAGNESIUM (MAGNESIUM SULFATE) [Concomitant]
  9. OXYCODONE [Concomitant]
     Active Substance: OXYCODONE
  10. LORAZEPAM. [Concomitant]
     Active Substance: LORAZEPAM
  11. LETAIRIS [Concomitant]
     Active Substance: AMBRISENTAN
  12. LEVOTHYROXINE [Concomitant]
     Active Substance: LEVOTHYROXINE

REACTIONS (7)
  - Vaginal disorder [None]
  - Cough [None]
  - Vulvovaginal discomfort [None]
  - Aphonia [None]
  - Headache [None]
  - Paranasal sinus hypersecretion [None]
  - Sinus headache [None]

NARRATIVE: CASE EVENT DATE: 20150109
